FAERS Safety Report 9635913 (Version 2)
Quarter: 2013Q4

REPORT INFORMATION
  Report Type: Spontaneous
  Country: US (occurrence: US)
  Receive Date: 20131021
  Receipt Date: 20131021
  Transmission Date: 20140711
  Serious: No
  Sender: FDA-Public Use
  Company Number: US-PURDUE-USA-2013-0103878

PATIENT
  Sex: Female

DRUGS (5)
  1. BUTRANS [Suspect]
     Indication: PRODUCT USED FOR UNKNOWN INDICATION
     Dosage: 10 MCG/HR, WEEKLY
     Route: 062
  2. AVINZA [Suspect]
     Indication: PRODUCT USED FOR UNKNOWN INDICATION
     Dosage: 60 MG, DAILY
     Route: 048
  3. LUNESTA [Concomitant]
     Indication: PRODUCT USED FOR UNKNOWN INDICATION
     Dosage: 2 MG, HS
     Route: 048
  4. PERCOCET                           /00446701/ [Concomitant]
     Indication: PRODUCT USED FOR UNKNOWN INDICATION
     Dosage: 7.5/325, TID PRN
     Route: 048
  5. FIORINAL                           /00090401/ [Concomitant]

REACTIONS (3)
  - Drug withdrawal syndrome [Unknown]
  - Heart rate increased [Recovered/Resolved]
  - Anxiety [Recovered/Resolved]
